FAERS Safety Report 8575932-3 (Version None)
Quarter: 2012Q3

REPORT INFORMATION
  Report Type: 
  Country: None (occurrence: None)
  Receive Date: 20120807
  Receipt Date: 20110829
  Transmission Date: 20120928
  Serious: No
  Sender: FDA-Public Use
  Company Number: US-PFIZER INC-K201101007

PATIENT
  Age: 40 Year
  Sex: Male
  Weight: 70.295 kg

DRUGS (1)
  1. CYTOMEL [Suspect]
     Indication: HYPOTHYROIDISM
     Dosage: 25 UG, 4X/DAY
     Route: 048
     Dates: start: 20101101

REACTIONS (2)
  - HYPOTHYROIDISM [None]
  - DRUG INEFFECTIVE [None]
